FAERS Safety Report 11197734 (Version 1)
Quarter: 2015Q2

REPORT INFORMATION
  Report Type: Report from Study
  Country: US (occurrence: US)
  Receive Date: 20150617
  Receipt Date: 20150617
  Transmission Date: 20150821
  Serious: No
  Sender: FDA-Public Use
  Company Number: US-009507513-1506USA007380

PATIENT
  Age: 62 Year
  Sex: Male

DRUGS (1)
  1. MK-0431A [Suspect]
     Active Substance: METFORMIN HYDROCHLORIDE\SITAGLIPTIN PHOSPHATE
     Indication: PRODUCT USED FOR UNKNOWN INDICATION
     Dosage: UNK, STRENGTH: 100/1000
     Route: 048

REACTIONS (1)
  - Drug ineffective [Recovering/Resolving]
